FAERS Safety Report 9537062 (Version 2)
Quarter: 2013Q4

REPORT INFORMATION
  Report Type: Spontaneous
  Country: US (occurrence: US)
  Receive Date: 20130919
  Receipt Date: 20131024
  Transmission Date: 20140711
  Serious: No
  Sender: FDA-Public Use
  Company Number: US-PFIZER INC-2013266050

PATIENT
  Sex: Female

DRUGS (1)
  1. NIFEDIPINE [Suspect]
     Dosage: 60 MG, 1X/DAY (60MG A DAY)

REACTIONS (7)
  - Oedema peripheral [Unknown]
  - Fatigue [Unknown]
  - Anxiety [Unknown]
  - Migraine [Unknown]
  - Crying [Unknown]
  - Neuropathy peripheral [Unknown]
  - Fibromyalgia [Unknown]
